FAERS Safety Report 6682777-8 (Version None)
Quarter: 2010Q2

REPORT INFORMATION
  Report Type: 
  Country: None (occurrence: None)
  Receive Date: 20100413
  Receipt Date: 20100330
  Transmission Date: 20101027
  Serious: Yes (Death, Hospitalization)
  Sender: FDA-Public Use
  Company Number: A-US2010-35126

PATIENT
  Age: 77 Year
  Sex: Female

DRUGS (22)
  1. TRACLEER [Suspect]
     Indication: PULMONARY ARTERIAL HYPERTENSION
     Dosage: 125 MG, BID ; 6.25 MG, BID, ORAL
     Route: 048
     Dates: start: 20091218, end: 20100101
  2. TRACLEER [Suspect]
     Indication: PULMONARY ARTERIAL HYPERTENSION
     Dosage: 125 MG, BID ; 6.25 MG, BID, ORAL
     Route: 048
     Dates: start: 20100101, end: 20100314
  3. DIGOXIN [Concomitant]
  4. LASIX [Concomitant]
  5. PRILOSEC (OMEPRZOLE) [Concomitant]
  6. POTASSIUM ([POTASSIUM) [Concomitant]
  7. COUMADIN [Concomitant]
  8. PROZAC [Concomitant]
  9. MAGNESIUM CITRATE (POTASSIUM BICARBONATE) [Concomitant]
  10. MORPHINE [Concomitant]
  11. PANTOPRAZOLE SODIUM [Concomitant]
  12. SODIUM BICARBONATE IN PLASTIC CONTAINER [Concomitant]
  13. ZOSYN [Concomitant]
  14. ANCEF (ONDANSETRON HYDROCHLORIDE) [Concomitant]
  15. ZOFRAN [Concomitant]
  16. HEPARIN [Concomitant]
  17. NEO-SYNEPHRINE (PHENYLEPHRINE HYDROCHLORIDE) [Concomitant]
  18. MAGNESIUM (MAGNESIUM) [Concomitant]
  19. BENADRYL [Concomitant]
  20. TIGAN [Concomitant]
  21. NORCO [Concomitant]
  22. FERROUS SULFATE TAB [Concomitant]

REACTIONS (8)
  - FALL [None]
  - HEPATIC FAILURE [None]
  - HEPATITIS TOXIC [None]
  - HIP FRACTURE [None]
  - HUMERUS FRACTURE [None]
  - HYPOTENSION [None]
  - LACTIC ACIDOSIS [None]
  - PULMONARY HYPERTENSION [None]
